FAERS Safety Report 19130659 (Version 1)
Quarter: 2021Q2

REPORT INFORMATION
  Report Type: Other
  Country: JP (occurrence: JP)
  Receive Date: 20210414
  Receipt Date: 20210414
  Transmission Date: 20210717
  Serious: Yes (Life-Threatening)
  Sender: FDA-Public Use
  Company Number: JP-ROCHE-2808452

PATIENT
  Age: 37 Year
  Sex: Female
  Weight: 59 kg

DRUGS (4)
  1. ENTRECTINIB [Suspect]
     Active Substance: ENTRECTINIB
     Indication: NON-SMALL CELL LUNG CANCER
     Route: 048
     Dates: start: 20200515, end: 20200517
  2. ENTRECTINIB [Suspect]
     Active Substance: ENTRECTINIB
     Route: 048
     Dates: start: 20200518, end: 20200602
  3. ENTRECTINIB [Suspect]
     Active Substance: ENTRECTINIB
     Route: 048
     Dates: start: 20200622, end: 20200626
  4. ENTRECTINIB [Suspect]
     Active Substance: ENTRECTINIB
     Route: 048
     Dates: start: 20200627, end: 20200817

REACTIONS (4)
  - Shock [Recovered/Resolved]
  - Adrenal insufficiency [Not Recovered/Not Resolved]
  - Atrioventricular block second degree [Recovered/Resolved]
  - Ataxia [Recovering/Resolving]

NARRATIVE: CASE EVENT DATE: 20200516
